FAERS Safety Report 19809523 (Version 1)
Quarter: 2021Q3

REPORT INFORMATION
  Report Type: Spontaneous
  Country: US (occurrence: US)
  Receive Date: 20210908
  Receipt Date: 20210908
  Transmission Date: 20211014
  Serious: No
  Sender: FDA-Public Use
  Company Number: US-ROCHE-2830162

PATIENT
  Sex: Female
  Weight: 63.56 kg

DRUGS (2)
  1. ALECENSA [Suspect]
     Active Substance: ALECTINIB HYDROCHLORIDE
     Indication: SMALL CELL LUNG CANCER
     Dosage: 4 PILLS TAKEN PER DOSE ;ONGOING: NO
     Route: 065
     Dates: start: 202010, end: 202103
  2. ALECENSA [Suspect]
     Active Substance: ALECTINIB HYDROCHLORIDE
     Dosage: YES
     Route: 048
     Dates: start: 202105

REACTIONS (3)
  - Fatigue [Not Recovered/Not Resolved]
  - Hyperaesthesia [Not Recovered/Not Resolved]
  - Constipation [Not Recovered/Not Resolved]
